FAERS Safety Report 22668636 (Version 3)
Quarter: 2023Q4

REPORT INFORMATION
  Report Type: Report from Study
  Country: US (occurrence: US)
  Receive Date: 20230704
  Receipt Date: 20231010
  Transmission Date: 20240110
  Serious: Yes (Hospitalization)
  Sender: FDA-Public Use
  Company Number: US-HORIZON THERAPEUTICS-HZN-2023-005056

PATIENT

DRUGS (3)
  1. KRYSTEXXA [Suspect]
     Active Substance: PEGLOTICASE
     Indication: Product used for unknown indication
     Dosage: FIRST INFUSION UNK
     Route: 042
     Dates: start: 20211015
  2. KRYSTEXXA [Suspect]
     Active Substance: PEGLOTICASE
     Dosage: (UNK) INFUSION
     Route: 042
     Dates: start: 20230630
  3. KRYSTEXXA [Suspect]
     Active Substance: PEGLOTICASE
     Dosage: UNKNOWN INFUSION
     Route: 042
     Dates: start: 20230922

REACTIONS (6)
  - Confusional state [Recovered/Resolved]
  - Asthenia [Recovered/Resolved]
  - Blood potassium increased [Unknown]
  - Blood testosterone decreased [Unknown]
  - Glomerular filtration rate decreased [Unknown]
  - Inappropriate schedule of product administration [Unknown]

NARRATIVE: CASE EVENT DATE: 20230101
